FAERS Safety Report 8372377-6 (Version None)
Quarter: 2012Q2

REPORT INFORMATION
  Report Type: 
  Country: None (occurrence: None)
  Receive Date: 20120521
  Receipt Date: 20120509
  Transmission Date: 20120825
  Serious: Yes (Other)
  Sender: FDA-Public Use
  Company Number: GB-VERTEX PHARMACEUTICALS INC.-000000000000000691

PATIENT
  Sex: Male

DRUGS (5)
  1. PEGINTERFERON ALFA-2A [Concomitant]
     Indication: HEPATITIS C
     Dosage: DOSAGE FORM: UNSPECIFIED
     Route: 065
  2. ACETAMINOPHEN AND CODEINE PHOSPHATE [Concomitant]
     Indication: ARTHROPATHY
     Dosage: DOSAGE FORM: UNSPECIFIED
     Route: 065
  3. DICLOFENAC SODIUM [Concomitant]
     Indication: ARTHROPATHY
     Dosage: DOSAGE FORM: UNSPECIFIED
     Route: 065
  4. TELAPREVIR [Suspect]
     Indication: HEPATITIS C
     Dosage: DOSAGE FORM: TABLET
     Route: 048
     Dates: start: 20120501
  5. RIBAVIRIN [Concomitant]
     Indication: HEPATITIS C
     Dosage: DOSAGE FORM: UNSPECIFIED
     Route: 065

REACTIONS (2)
  - RASH [None]
  - FATIGUE [None]
